FAERS Safety Report 9127022 (Version 4)
Quarter: 2013Q2

REPORT INFORMATION
  Report Type: Spontaneous
  Country: GB (occurrence: GB)
  Receive Date: 20130228
  Receipt Date: 20130523
  Transmission Date: 20140414
  Serious: Yes (Hospitalization, Other)
  Sender: FDA-Public Use
  Company Number: PHFR2013GB001398

PATIENT
  Age: 63 Year
  Sex: Male

DRUGS (7)
  1. CLOZARIL [Suspect]
     Indication: SCHIZOPHRENIA
     Dosage: UNK
     Route: 048
     Dates: start: 20011022, end: 20130421
  2. DOXORUBICIN [Suspect]
     Dosage: UNK
     Dates: start: 20130321
  3. RITUXIMAB [Suspect]
     Dosage: UNK
     Dates: start: 20130321
  4. PREDNISOLONE [Suspect]
     Dosage: UNK
     Dates: start: 20130321
  5. VINCRISTINE [Suspect]
     Dosage: UNK
     Dates: start: 20130321
  6. CYCLOPHOSPHAMIDE [Suspect]
     Dosage: UNK
     Dates: start: 20130321
  7. GRANULOCYTE COLONY STIMULATING FACTOR [Concomitant]
     Dosage: UNK

REACTIONS (7)
  - Abdominal pain [Unknown]
  - Gastrointestinal haemorrhage [Unknown]
  - Lymphoma [Unknown]
  - White blood cell count decreased [Recovered/Resolved]
  - Platelet count decreased [Recovered/Resolved]
  - White blood cell count increased [Unknown]
  - Neutrophil count increased [Unknown]
